FAERS Safety Report 10053150 (Version 1)
Quarter: 2014Q2

REPORT INFORMATION
  Report Type: Spontaneous
  Country: JP (occurrence: JP)
  Receive Date: 20140402
  Receipt Date: 20140402
  Transmission Date: 20141212
  Serious: Yes (Death, Other)
  Sender: FDA-Public Use
  Company Number: JP-ELI_LILLY_AND_COMPANY-JP201403010507

PATIENT
  Age: 104 Year
  Sex: Female

DRUGS (6)
  1. HUMAN INSULIN (RDNA ORIGIN) [Suspect]
     Indication: PRODUCT USED FOR UNKNOWN INDICATION
     Dosage: 12 UNK, UNK
     Route: 042
     Dates: start: 20140319
  2. NEOPHYLLIN [Concomitant]
     Route: 042
  3. SOLU-CORTEF [Concomitant]
     Route: 042
  4. MEROPEN [Concomitant]
  5. LASIX [Concomitant]
     Route: 042
  6. DIGOXIN [Concomitant]
     Dosage: UNK
     Route: 042

REACTIONS (6)
  - Death [Fatal]
  - Hepatic failure [Unknown]
  - Blood pressure decreased [Unknown]
  - Dyspnoea [Unknown]
  - Tremor [Unknown]
  - Platelet count decreased [Unknown]
